FAERS Safety Report 7364847-4 (Version None)
Quarter: 2011Q1

REPORT INFORMATION
  Report Type: 
  Country: None (occurrence: None)
  Receive Date: 20110321
  Receipt Date: 20110309
  Transmission Date: 20110831
  Serious: Yes (Hospitalization, Other)
  Sender: FDA-Public Use
  Company Number: PHHY2011US11590

PATIENT
  Sex: Male

DRUGS (17)
  1. LOPERAMIDE [Concomitant]
     Indication: DIARRHOEA
     Dosage: 2 MG SIX TIMES A DAY
  2. ASPIRIN [Concomitant]
     Dosage: 81 MG DAILY
  3. IRON POLYSACCHARIDE [Concomitant]
     Dosage: 325 MG, TID
  4. FLORINEF [Concomitant]
     Dosage: 0.1 MG
  5. PROGRAF [Concomitant]
     Dosage: 2 MG DAILY
  6. ASCORBIC ACID [Concomitant]
     Dosage: 500 MG DAILY
  7. OMEGA-3 FATTY ACIDS [Concomitant]
     Dosage: DAILY
     Route: 048
  8. PREDNISONE [Concomitant]
     Dosage: 5 MG DAILY
  9. SODIUM BICARBONATE [Concomitant]
     Dosage: 30 MEQ DAILY
  10. AZITHROMYCIN [Concomitant]
     Dosage: UNK
  11. DILTIAZEM [Concomitant]
     Dosage: 120 MG DAILY
  12. METOPROLOL SUCCINATE [Concomitant]
     Dosage: 75 MG, BID
  13. MULTI-VITAMINS [Concomitant]
     Dosage: DAILY
     Route: 048
  14. OMEPRAZOLE [Concomitant]
     Dosage: 20 MG DAILY
  15. MYFORTIC [Suspect]
     Indication: RENAL TRANSPLANT
     Dosage: 360 MG, BID
     Route: 048
     Dates: start: 20100913
  16. CALCITRIOL [Concomitant]
     Dosage: 0.25 MCG DAILY
  17. LASIX [Concomitant]
     Dosage: 20 MG, BID

REACTIONS (12)
  - DIARRHOEA [None]
  - PRODUCTIVE COUGH [None]
  - HYPOXIA [None]
  - HYPOPARATHYROIDISM SECONDARY [None]
  - ANAEMIA [None]
  - RENAL FAILURE [None]
  - VOMITING [None]
  - PULMONARY OEDEMA [None]
  - NAUSEA [None]
  - ATRIAL FIBRILLATION [None]
  - IRON DEFICIENCY [None]
  - HAEMOPTYSIS [None]
